FAERS Safety Report 13787018 (Version 1)
Quarter: 2017Q3

REPORT INFORMATION
  Report Type: Spontaneous
  Country: US (occurrence: US)
  Receive Date: 20170725
  Receipt Date: 20170725
  Transmission Date: 20171127
  Serious: No
  Sender: FDA-Public Use
  Company Number: None

PATIENT
  Age: 86 Year
  Sex: Female
  Weight: 76.27 kg

DRUGS (6)
  1. SIMAVASTIN [Concomitant]
  2. LOVOTHYROXINE [Concomitant]
  3. CENTURY SILVER (WOMEN 50+ [Concomitant]
  4. ATENOLOL. [Concomitant]
     Active Substance: ATENOLOL
  5. LO DOSE ASPIRINE [Concomitant]
  6. SUCRALFATE 1GM TABLETS [Suspect]
     Active Substance: SUCRALFATE
     Indication: DYSPHAGIA
     Route: 048
     Dates: start: 20170510, end: 20170525

REACTIONS (3)
  - Skin exfoliation [None]
  - Swelling [None]
  - Erythema [None]

NARRATIVE: CASE EVENT DATE: 20170525
